FAERS Safety Report 5357979-3 (Version None)
Quarter: 2007Q2

REPORT INFORMATION
  Report Type: 
  Country: None (occurrence: None)
  Receive Date: 20070612
  Receipt Date: 20070605
  Transmission Date: 20071010
  Serious: Yes (Death, Life-Threatening, Other)
  Sender: FDA-Public Use
  Company Number: 163-21880-06110376

PATIENT
  Age: 77 Year
  Sex: Female

DRUGS (6)
  1. REVLIMID [Suspect]
     Indication: CHRONIC MYELOID LEUKAEMIA
     Dosage: 25 MG, QD X 21 DAYS THEN 7 DAYS OFF, ORAL
     Route: 048
     Dates: start: 20060923, end: 20061001
  2. NEXIUM [Concomitant]
  3. VALTREX [Concomitant]
  4. DETROL [Concomitant]
  5. GUAGENESIN (GUAIFENESIN0 [Concomitant]
  6. HYCODAN [Concomitant]

REACTIONS (7)
  - CHRONIC LYMPHOCYTIC LEUKAEMIA [None]
  - DEEP VEIN THROMBOSIS [None]
  - DISEASE PROGRESSION [None]
  - ELECTROLYTE IMBALANCE [None]
  - MULTI-ORGAN FAILURE [None]
  - PANCYTOPENIA [None]
  - THROMBOSIS [None]
